FAERS Safety Report 15886144 (Version 14)
Quarter: 2019Q2

REPORT INFORMATION
  Report Type: Spontaneous
  Country: US (occurrence: US)
  Receive Date: 20190129
  Receipt Date: 20190522
  Transmission Date: 20190711
  Serious: Yes (Hospitalization, Other)
  Sender: FDA-Public Use
  Company Number: US-PFIZER INC-2019035420

PATIENT
  Age: 67 Year
  Sex: Male
  Weight: 80 kg

DRUGS (7)
  1. SULFASALAZINE. [Suspect]
     Active Substance: SULFASALAZINE
     Indication: RHEUMATOID ARTHRITIS
     Dosage: 1500 MG, 2X/DAY
     Route: 048
  2. NPH INSULIN [Concomitant]
     Active Substance: INSULIN BEEF
     Indication: DIABETES MELLITUS
     Dosage: UNK UNK, 1X/DAY (IN THE MORNING)
  3. AZULFIDINE [Suspect]
     Active Substance: SULFASALAZINE
     Indication: RHEUMATOID ARTHRITIS
     Dosage: 1500 MG, 2X/DAY
     Route: 048
  4. XELJANZ XR [Suspect]
     Active Substance: TOFACITINIB CITRATE
     Indication: RHEUMATOID ARTHRITIS
     Dosage: 11 MG, 1X/DAY (AT NIGHT)
     Route: 048
     Dates: start: 201901, end: 201901
  5. NOVOLOG [Concomitant]
     Active Substance: INSULIN ASPART
     Indication: TYPE 1 DIABETES MELLITUS
     Dosage: UNK UNK, 1X/DAY (IN THE MORNING)
  6. HUMALOG [Concomitant]
     Active Substance: INSULIN LISPRO
     Indication: TYPE 1 DIABETES MELLITUS
     Dosage: UNK UNK, 1X/DAY (IN THE MORNING)
  7. PREDNISONE. [Suspect]
     Active Substance: PREDNISONE
     Indication: ILL-DEFINED DISORDER
     Dosage: 20 MG, 1X/DAY (IN THE MORNING)

REACTIONS (18)
  - Dehydration [Unknown]
  - Condition aggravated [Unknown]
  - Immunosuppression [Unknown]
  - Diabetes mellitus [Unknown]
  - Gastrooesophageal reflux disease [Unknown]
  - Blood glucose increased [Unknown]
  - Vomiting [Unknown]
  - Fracture [Unknown]
  - Fatigue [Unknown]
  - Musculoskeletal disorder [Unknown]
  - Rheumatoid arthritis [Unknown]
  - Arthropathy [Unknown]
  - Diarrhoea [Unknown]
  - Nausea [Unknown]
  - Viral infection [Unknown]
  - Cardiac disorder [Unknown]
  - Pain [Not Recovered/Not Resolved]
  - Hypokinesia [Unknown]

NARRATIVE: CASE EVENT DATE: 201904
